FAERS Safety Report 17130984 (Version 1)
Quarter: 2019Q4

REPORT INFORMATION
  Report Type: Spontaneous
  Country: US (occurrence: US)
  Receive Date: 20191209
  Receipt Date: 20191209
  Transmission Date: 20200122
  Serious: No
  Sender: FDA-Public Use
  Company Number: US-ROCHE-2416581

PATIENT
  Sex: Female

DRUGS (4)
  1. CYMBALTA [Concomitant]
     Active Substance: DULOXETINE HYDROCHLORIDE
  2. VALIUM [Suspect]
     Active Substance: DIAZEPAM
     Indication: PAIN
     Route: 065
  3. LYRICA [Concomitant]
     Active Substance: PREGABALIN
  4. NEURONTIN [Concomitant]
     Active Substance: GABAPENTIN

REACTIONS (2)
  - No adverse event [Unknown]
  - Product administration error [Unknown]
